FAERS Safety Report 7879068-6 (Version None)
Quarter: 2011Q4

REPORT INFORMATION
  Report Type: 
  Country: None (occurrence: None)
  Receive Date: 20111101
  Receipt Date: 20111026
  Transmission Date: 20120403
  Serious: Yes (Hospitalization)
  Sender: FDA-Public Use
  Company Number: PHHY2011SE94379

PATIENT
  Age: 40 Year
  Sex: Male

DRUGS (1)
  1. RITALIN [Suspect]
     Dosage: 120 MG, QD

REACTIONS (2)
  - PALPITATIONS [None]
  - CHEST DISCOMFORT [None]
